FAERS Safety Report 9858955 (Version 2)
Quarter: 2014Q2

REPORT INFORMATION
  Report Type: Spontaneous
  Country: US (occurrence: None)
  Receive Date: 20140129
  Receipt Date: 20140403
  Transmission Date: 20141212
  Serious: Yes (Hospitalization)
  Sender: FDA-Public Use
  Company Number: UTC-043576

PATIENT
  Age: 34 Year
  Sex: Female
  Weight: 66.36 kg

DRUGS (3)
  1. TYVASO [Suspect]
     Indication: COR PULMONALE CHRONIC
     Route: 055
     Dates: start: 20130802
  2. ADCIRCA [Concomitant]
  3. LETAIRIS (AMBRISENTAN) (TABLETS) [Concomitant]

REACTIONS (3)
  - Wound [None]
  - Pain [None]
  - Skin ulcer [None]
